FAERS Safety Report 15552991 (Version 1)
Quarter: 2018Q4

REPORT INFORMATION
  Report Type: Spontaneous
  Country: US (occurrence: US)
  Receive Date: 20181025
  Receipt Date: 20181025
  Transmission Date: 20190205
  Serious: No
  Sender: FDA-Public Use
  Company Number: US-UNITED THERAPEUTICS-UNT-2018-017170

PATIENT
  Sex: Male
  Weight: 68.93 kg

DRUGS (2)
  1. TYVASO [Suspect]
     Active Substance: TREPROSTINIL
     Indication: PULMONARY ARTERIAL HYPERTENSION
     Dosage: 18-54 MICROGRAMS, QID
     Dates: start: 20180809
  2. TYVASO [Suspect]
     Active Substance: TREPROSTINIL
     Dosage: 48 ?G, UNK

REACTIONS (3)
  - Incorrect dose administered by device [Unknown]
  - Oropharyngeal pain [Unknown]
  - Device issue [Unknown]

NARRATIVE: CASE EVENT DATE: 2018
